FAERS Safety Report 7665578-3 (Version None)
Quarter: 2011Q3

REPORT INFORMATION
  Report Type: 
  Country: None (occurrence: None)
  Receive Date: 20110806
  Receipt Date: 20110316
  Transmission Date: 20111222
  Serious: No
  Sender: FDA-Public Use
  Company Number: US-ABBOTT-11P-163-0711982-00

PATIENT
  Sex: Male
  Weight: 96.248 kg

DRUGS (3)
  1. AMLODIPINE [Concomitant]
     Indication: HYPERTENSION
  2. NIASPAN [Suspect]
     Indication: BLOOD CHOLESTEROL INCREASED
     Dates: start: 20110224
  3. ASPIRIN [Suspect]
     Indication: PROPHYLAXIS
     Dates: start: 19950101

REACTIONS (7)
  - MYALGIA [None]
  - DYSGEUSIA [None]
  - INSOMNIA [None]
  - ARTHRALGIA [None]
  - DRY MOUTH [None]
  - HEADACHE [None]
  - JOINT SWELLING [None]
